FAERS Safety Report 6707713-7 (Version None)
Quarter: 2010Q2

REPORT INFORMATION
  Report Type: 
  Country: None (occurrence: None)
  Receive Date: 20100503
  Receipt Date: 20090527
  Transmission Date: 20101027
  Serious: No
  Sender: FDA-Public Use
  Company Number: US-ASTRAZENECA-2009UW13543

PATIENT
  Age: 65 Year
  Sex: Female

DRUGS (4)
  1. NEXIUM [Suspect]
     Route: 048
  2. BENAZEPRIL HYDROCHLORIDE [Concomitant]
  3. CELEBREX [Concomitant]
  4. SERTRALINE HCL [Concomitant]

REACTIONS (1)
  - BLOOD CHOLESTEROL INCREASED [None]
